FAERS Safety Report 25181295 (Version 1)
Quarter: 2025Q2

REPORT INFORMATION
  Report Type: Spontaneous
  Country: AU (occurrence: AU)
  Receive Date: 20250410
  Receipt Date: 20250410
  Transmission Date: 20250716
  Serious: Yes (Other)
  Sender: ACCORD
  Company Number: None

PATIENT
  Age: 43 Year
  Sex: Female

DRUGS (6)
  1. METHOTREXATE [Suspect]
     Active Substance: METHOTREXATE
     Indication: Product used for unknown indication
  2. MYCOPHENOLATE MOFETIL [Suspect]
     Active Substance: MYCOPHENOLATE MOFETIL
     Indication: Product used for unknown indication
  3. DEXAMETHASONE [Suspect]
     Active Substance: DEXAMETHASONE
     Indication: Product used for unknown indication
  4. PREDNISONE [Suspect]
     Active Substance: PREDNISONE
     Indication: Product used for unknown indication
  5. RITUXIMAB [Suspect]
     Active Substance: RITUXIMAB
     Indication: Product used for unknown indication
  6. FOLIC ACID [Concomitant]
     Active Substance: FOLIC ACID

REACTIONS (11)
  - Osteopenia [Unknown]
  - Lumbar vertebral fracture [Unknown]
  - Lymphoproliferative disorder [Unknown]
  - Monoclonal B-cell lymphocytosis [Unknown]
  - Paraneoplastic encephalomyelitis [Unknown]
  - Stiff person syndrome [Unknown]
  - Hand fracture [Unknown]
  - Fall [Unknown]
  - Disease recurrence [Unknown]
  - Off label use [Unknown]
  - Thyroid disorder [Unknown]
